FAERS Safety Report 5965346-4 (Version None)
Quarter: 2008Q4

REPORT INFORMATION
  Report Type: 
  Country: None (occurrence: None)
  Receive Date: 20081121
  Receipt Date: 20081121
  Transmission Date: 20090506
  Serious: Yes (Hospitalization)
  Sender: FDA-Public Use
  Company Number: None

PATIENT
  Age: 72 Year
  Sex: Male

DRUGS (1)
  1. LEVOFLOXACIN [Suspect]
     Dosage: 750 MG EVERY DAY PO
     Route: 048
     Dates: start: 20080909, end: 20080914

REACTIONS (2)
  - CONVULSION [None]
  - HYPOGLYCAEMIA [None]
